FAERS Safety Report 25759340 (Version 1)
Quarter: 2025Q3

REPORT INFORMATION
  Report Type: Spontaneous
  Country: EU (occurrence: EU)
  Receive Date: 20250904
  Receipt Date: 20250904
  Transmission Date: 20251021
  Serious: Yes (Death, Other)
  Sender: BIOVITRUM
  Company Number: EU-BIOVITRUM-2025-AT-008648

PATIENT
  Sex: Male
  Weight: 5.5 kg

DRUGS (2)
  1. ANAKINRA [Suspect]
     Active Substance: ANAKINRA
     Indication: Congenital ectodermal dysplasia
     Route: 058
  2. ANAKINRA [Suspect]
     Active Substance: ANAKINRA
     Indication: Immunodeficiency
     Route: 058

REACTIONS (2)
  - Off label use [Not Recovered/Not Resolved]
  - Multiple organ dysfunction syndrome [Fatal]
